FAERS Safety Report 5800073-5 (Version None)
Quarter: 2008Q3

REPORT INFORMATION
  Report Type: 
  Country: None (occurrence: None)
  Receive Date: 20080703
  Receipt Date: 20080624
  Transmission Date: 20090109
  Serious: Yes (Hospitalization)
  Sender: FDA-Public Use
  Company Number: CH-AMGEN-UK284886

PATIENT
  Sex: Female

DRUGS (23)
  1. PANITUMUMAB - OBSERVATION/NO DRUG [Suspect]
     Indication: SQUAMOUS CELL CARCINOMA
     Route: 042
     Dates: start: 20080221, end: 20080508
  2. PANITUMUMAB - STUDY PROCEDURE [Suspect]
  3. CISPLATIN [Concomitant]
  4. FLUOROURACIL [Concomitant]
  5. BLOOD, WHOLE [Concomitant]
     Route: 042
     Dates: start: 20080524, end: 20080524
  6. NOVALGIN [Concomitant]
     Route: 042
     Dates: start: 20080524, end: 20080524
  7. NOVALGIN [Concomitant]
     Route: 042
     Dates: start: 20080526, end: 20080526
  8. NOVALGIN [Concomitant]
     Route: 042
     Dates: start: 20080529, end: 20080529
  9. LASIX [Concomitant]
     Route: 042
     Dates: start: 20080524, end: 20080524
  10. LASIX [Concomitant]
     Route: 042
     Dates: start: 20080602, end: 20080603
  11. AUGMENTIN '125' [Concomitant]
     Route: 050
     Dates: start: 20080525, end: 20080528
  12. VOLTAREN [Concomitant]
     Route: 042
     Dates: start: 20080526, end: 20080528
  13. NITRODERM [Concomitant]
     Route: 023
     Dates: start: 20080527, end: 20080527
  14. MAGNESIUM SULFATE [Concomitant]
     Route: 042
     Dates: start: 20080528, end: 20080528
  15. MAGNESIUM SULFATE [Concomitant]
     Route: 050
     Dates: start: 20080529, end: 20080612
  16. POTASSIUM CHLORIDE [Concomitant]
     Route: 042
     Dates: start: 20080527, end: 20080528
  17. POTASSIUM CHLORIDE [Concomitant]
     Route: 042
     Dates: start: 20080528, end: 20080529
  18. POTASSIUM CHLORIDE [Concomitant]
     Route: 042
     Dates: start: 20080530, end: 20080616
  19. IMODIUM [Concomitant]
     Route: 060
     Dates: start: 20080531, end: 20080602
  20. KALIUM [Concomitant]
     Route: 050
     Dates: start: 20080604, end: 20080611
  21. DIFLUCAN [Concomitant]
     Route: 050
     Dates: start: 20080605, end: 20080605
  22. DIFLUCAN [Concomitant]
     Route: 050
     Dates: start: 20080606, end: 20080608
  23. DAFALGAN [Concomitant]
     Dates: start: 20080613, end: 20080613

REACTIONS (2)
  - PNEUMONIA [None]
  - TUMOUR HAEMORRHAGE [None]
